FAERS Safety Report 20827294 (Version 1)
Quarter: 2022Q2

REPORT INFORMATION
  Report Type: Spontaneous
  Country: CA (occurrence: CA)
  Receive Date: 20220513
  Receipt Date: 20220513
  Transmission Date: 20220721
  Serious: Yes (Other)
  Sender: FDA-Public Use
  Company Number: CA-BRACCO-2022CA01816

PATIENT
  Age: 48 Year
  Sex: Female

DRUGS (1)
  1. ISOVUE 370 [Suspect]
     Active Substance: IOPAMIDOL
     Indication: Computerised tomogram
     Dosage: 74 ML, SINGLE
     Route: 042

REACTIONS (3)
  - Glossodynia [Recovered/Resolved]
  - Oral pain [Recovered/Resolved]
  - Paraesthesia [Recovered/Resolved]
